FAERS Safety Report 5113821-7 (Version None)
Quarter: 2006Q3

REPORT INFORMATION
  Report Type: 
  Country: None (occurrence: None)
  Receive Date: 20060920
  Receipt Date: 20060905
  Transmission Date: 20061208
  Serious: Yes (Hospitalization)
  Sender: FDA-Public Use
  Company Number: FR200609001009

PATIENT
  Age: 51 Year
  Sex: Male

DRUGS (1)
  1. GEMZAR [Suspect]
     Indication: PANCREATIC CARCINOMA METASTATIC
     Dosage: 1000 MG/M2, WEEKLY (1/W), INTRAVENOUS
     Route: 042
     Dates: start: 20060301, end: 20060801

REACTIONS (1)
  - JAUNDICE CHOLESTATIC [None]
